FAERS Safety Report 7365226-6 (Version None)
Quarter: 2011Q1

REPORT INFORMATION
  Report Type: 
  Country: None (occurrence: None)
  Receive Date: 20110322
  Receipt Date: 20110310
  Transmission Date: 20110831
  Serious: Yes (Other)
  Sender: FDA-Public Use
  Company Number: IL-AMGEN-ISRSP2011014378

PATIENT
  Age: 51 Year
  Sex: Male

DRUGS (4)
  1. ENBREL [Suspect]
     Indication: RHEUMATOID ARTHRITIS
     Dosage: UNK
     Dates: start: 20090101
  2. MTX                                /00113801/ [Concomitant]
     Dosage: UNK
  3. SALAZOPYRIN [Concomitant]
     Dosage: UNK
  4. PLAQUENIL [Concomitant]
     Dosage: UNK

REACTIONS (6)
  - RED BLOOD CELL SEDIMENTATION RATE INCREASED [None]
  - EOSINOPHILIA [None]
  - LYMPHADENOPATHY [None]
  - WEIGHT DECREASED [None]
  - PYREXIA [None]
  - ANTINUCLEAR ANTIBODY POSITIVE [None]
